APPROVED DRUG PRODUCT: PALONOSETRON HYDROCHLORIDE
Active Ingredient: PALONOSETRON HYDROCHLORIDE
Strength: EQ 0.25MG BASE/5ML (EQ 0.05MG BASE/ML)
Dosage Form/Route: INJECTABLE;INTRAVENOUS
Application: A206916 | Product #001 | TE Code: AP
Applicant: BAXTER HEALTHCARE CORP
Approved: Nov 12, 2021 | RLD: No | RS: No | Type: RX